APPROVED DRUG PRODUCT: PANTOPRAZOLE SODIUM
Active Ingredient: PANTOPRAZOLE SODIUM
Strength: EQ 40MG BASE
Dosage Form/Route: FOR SUSPENSION, DELAYED RELEASE;ORAL
Application: A216139 | Product #001 | TE Code: AB
Applicant: ANNORA PHARMA PRIVATE LTD
Approved: Oct 27, 2023 | RLD: No | RS: No | Type: RX